FAERS Safety Report 7678238-X (Version None)
Quarter: 2011Q3

REPORT INFORMATION
  Report Type: 
  Country: None (occurrence: None)
  Receive Date: 20110811
  Receipt Date: 20100331
  Transmission Date: 20111222
  Serious: No
  Sender: FDA-Public Use
  Company Number: US-BAYER-2011-053635

PATIENT

DRUGS (1)
  1. AVELOX [Suspect]

REACTIONS (2)
  - RASH MACULAR [None]
  - PHOTOSENSITIVITY REACTION [None]
